FAERS Safety Report 7670743-5 (Version None)
Quarter: 2011Q3

REPORT INFORMATION
  Report Type: 
  Country: None (occurrence: None)
  Receive Date: 20110809
  Receipt Date: 20110801
  Transmission Date: 20111222
  Serious: Yes (Other)
  Sender: FDA-Public Use
  Company Number: FR-BRISTOL-MYERS SQUIBB COMPANY-15941420

PATIENT
  Age: 82 Year
  Sex: Female
  Weight: 75 kg

DRUGS (3)
  1. TENORDATE [Concomitant]
     Indication: HYPERTENSION
  2. PRAVASTATIN SODIUM [Suspect]
  3. ECAZIDE [Concomitant]
     Indication: HYPERTENSION

REACTIONS (1)
  - INCONTINENCE [None]
